FAERS Safety Report 9739388 (Version 1)
Quarter: 2013Q4

REPORT INFORMATION
  Report Type: Spontaneous
  Country: IT (occurrence: IT)
  Receive Date: 20131209
  Receipt Date: 20131209
  Transmission Date: 20140711
  Serious: Yes (Other)
  Sender: FDA-Public Use
  Company Number: IT-BAYER-2013-146824

PATIENT
  Age: 35 Year
  Sex: 0

DRUGS (4)
  1. SORAFENIB (RAF KINASE INHIBITOR) [Suspect]
     Indication: HEPATOCELLULAR CARCINOMA
     Dosage: DAILY DOSE 800 MG
  2. SORAFENIB (RAF KINASE INHIBITOR) [Interacting]
     Indication: HEPATOCELLULAR CARCINOMA
     Dosage: DAILY DOSE 400 MG
  3. TENOFOVIR [Suspect]
     Indication: ANTIRETROVIRAL THERAPY
  4. FTC [Suspect]
     Indication: ANTIRETROVIRAL THERAPY

REACTIONS (5)
  - Hepatic failure [None]
  - Hypertension [None]
  - Diarrhoea [None]
  - Fatigue [None]
  - Drug interaction [None]
